FAERS Safety Report 25322904 (Version 2)
Quarter: 2025Q2

REPORT INFORMATION
  Report Type: Report from Study
  Country: CA (occurrence: CA)
  Receive Date: 20250516
  Receipt Date: 20250609
  Transmission Date: 20250716
  Serious: Yes (Death, Hospitalization)
  Sender: ABBVIE
  Company Number: CA-ABBVIE-6285820

PATIENT
  Age: 89 Year
  Sex: Male

DRUGS (11)
  1. LUPRON [Suspect]
     Active Substance: LEUPROLIDE ACETATE
     Indication: Prostate cancer
     Dosage: STRENGTH: 22.5 MG, INJECT  INTO THE SHOULDER, THIGH, OR BUTTOCKS EVERY 3 MONTHS.
     Route: 030
     Dates: start: 20240923, end: 20250310
  2. PANTOPRAZOLE SODIUM [Concomitant]
     Active Substance: PANTOPRAZOLE SODIUM
     Indication: Product used for unknown indication
     Dosage: TAKE 1 TABLET 40 MG TOTAL BY MOUTH 1 TIME EACH DAY
     Route: 048
  3. ALTACE [Concomitant]
     Active Substance: RAMIPRIL
     Indication: Product used for unknown indication
     Dosage: TAKE 1 CAPSULE BY MOUTH 1 TIME EACH DAY
     Route: 048
  4. TIMOLOL\TRAVOPROST [Concomitant]
     Active Substance: TIMOLOL\TRAVOPROST
     Indication: Product used for unknown indication
     Dosage: 1 DROP INTO BOTH EYES EVERY NIGHT
  5. TYLENOL ARTHRITIS PAIN [Concomitant]
     Active Substance: ACETAMINOPHEN
     Indication: Product used for unknown indication
     Route: 048
  6. ASPIRIN [Concomitant]
     Active Substance: ASPIRIN
     Indication: Product used for unknown indication
     Dosage: TAKE 1 TABLET BY MOUTH 1 TIME EACH DAY
     Route: 048
  7. BETADERM [Concomitant]
     Active Substance: BETAMETHASONE VALERATE
     Indication: Skin irritation
     Dosage: APPLY TOPICALLY TWO TIMES A DAY IF NEEDED
     Route: 061
  8. CASODEX [Concomitant]
     Active Substance: BICALUTAMIDE
     Indication: Product used for unknown indication
     Dosage: TAKE 1 TABLET BY MOUTH 1 TIME EACH DAY
     Route: 048
     Dates: start: 20250219, end: 20250321
  9. VITAMIN D3 [Concomitant]
     Active Substance: CHOLECALCIFEROL
     Indication: Product used for unknown indication
     Dosage: TAKE 1 TABLET, 1000 UNITS BY MOUTH 1 TIME EACH DAY
     Route: 048
  10. TRUSOPT [Concomitant]
     Active Substance: DORZOLAMIDE HYDROCHLORIDE
     Indication: Product used for unknown indication
     Dosage: OPHTHALMIC SOLUTIONS,?ADMINISTER 1 DROP INTO BOTH EYES TWO TIMES. BOTH EYES
  11. EZETIMIBE [Concomitant]
     Active Substance: EZETIMIBE
     Indication: Product used for unknown indication
     Dosage: TAKE 1 TABLET BY MOUTH 1 TIME EACH DAY
     Route: 048

REACTIONS (3)
  - Death [Fatal]
  - Fall [Unknown]
  - Asthenia [Unknown]
